FAERS Safety Report 25587202 (Version 1)
Quarter: 2025Q3

REPORT INFORMATION
  Report Type: Spontaneous
  Country: US (occurrence: US)
  Receive Date: 20250721
  Receipt Date: 20250721
  Transmission Date: 20251021
  Serious: No
  Sender: BIOMARIN
  Company Number: US-BIOMARINAP-US-2025-167389

PATIENT
  Age: 41 Year
  Sex: Female

DRUGS (1)
  1. PALYNZIQ [Suspect]
     Active Substance: PEGVALIASE-PQPZ
     Indication: Product used for unknown indication

REACTIONS (2)
  - Alopecia [Unknown]
  - Hypophenylalaninaemia [Unknown]

NARRATIVE: CASE EVENT DATE: 20250101
